FAERS Safety Report 21760703 (Version 1)
Quarter: 2022Q4

REPORT INFORMATION
  Report Type: Spontaneous
  Country: US (occurrence: US)
  Receive Date: 20221221
  Receipt Date: 20221221
  Transmission Date: 20230113
  Serious: Yes (Other)
  Sender: FDA-Public Use
  Company Number: US-BRISTOL-MYERS SQUIBB COMPANY-2022-156373

PATIENT
  Age: 70 Year
  Sex: Female
  Weight: 47 kg

DRUGS (4)
  1. REVLIMID [Suspect]
     Active Substance: LENALIDOMIDE
     Indication: Plasma cell myeloma
     Dosage: 21 DAYS AND 7 DAYS OFF
     Route: 048
     Dates: start: 20190121, end: 20221208
  2. REVLIMID [Suspect]
     Active Substance: LENALIDOMIDE
     Dosage: 28CT?REFILL DOSE CHANGE
     Route: 048
     Dates: start: 20221116, end: 20221216
  3. DARZALEX FASPRO [Concomitant]
     Active Substance: DARATUMUMAB\HYALURONIDASE-FIHJ
     Dosage: 1800-30000?AS DIRECTED
     Route: 058
  4. ALVOGEN LENALIDOMIDE [Concomitant]
     Dosage: AS DIRECTED
     Route: 048
     Dates: start: 20221216

REACTIONS (1)
  - Thrombocytopenia [Recovering/Resolving]

NARRATIVE: CASE EVENT DATE: 20221206
